FAERS Safety Report 17564588 (Version 1)
Quarter: 2020Q1

REPORT INFORMATION
  Report Type: Report from Study
  Country: None (occurrence: US)
  Receive Date: 20200320
  Receipt Date: 20200320
  Transmission Date: 20200409
  Serious: Yes (Other)
  Sender: FDA-Public Use
  Company Number: US-ABBVIE-20K-163-3327252-00

PATIENT
  Sex: Male

DRUGS (1)
  1. SYNTHROID [Suspect]
     Active Substance: LEVOTHYROXINE SODIUM
     Indication: PRODUCT USED FOR UNKNOWN INDICATION
     Route: 048

REACTIONS (13)
  - Prostate cancer [Unknown]
  - Cardiac failure congestive [Unknown]
  - Blood cholesterol abnormal [Unknown]
  - Glaucoma [Unknown]
  - Transient ischaemic attack [Unknown]
  - Blood pressure abnormal [Unknown]
  - Mental disorder [Unknown]
  - Diabetes mellitus [Unknown]
  - Cerebral haemorrhage [Unknown]
  - Wheelchair user [Unknown]
  - Chronic kidney disease [Unknown]
  - Cardiac disorder [Unknown]
  - Obesity [Unknown]
